FAERS Safety Report 14754594 (Version 2)
Quarter: 2018Q2

REPORT INFORMATION
  Report Type: Spontaneous
  Country: US (occurrence: US)
  Receive Date: 20180413
  Receipt Date: 20180423
  Transmission Date: 20180711
  Serious: No
  Sender: FDA-Public Use
  Company Number: US-BIOGEN-2018BI00552264

PATIENT
  Sex: Female

DRUGS (2)
  1. BENADRYL [Concomitant]
     Active Substance: DIPHENHYDRAMINE HYDROCHLORIDE
     Indication: PROPHYLAXIS
     Route: 065
  2. TYSABRI [Suspect]
     Active Substance: NATALIZUMAB
     Indication: MULTIPLE SCLEROSIS
     Route: 042
     Dates: start: 20170829, end: 20180316

REACTIONS (5)
  - Musculoskeletal disorder [Recovered/Resolved]
  - Feeling of body temperature change [Recovered/Resolved]
  - Chest pain [Recovered/Resolved]
  - Arthralgia [Recovered/Resolved]
  - Cardiovascular symptom [Unknown]
